FAERS Safety Report 8299308-1 (Version None)
Quarter: 2012Q2

REPORT INFORMATION
  Report Type: 
  Country: None (occurrence: None)
  Receive Date: 20120419
  Receipt Date: 20120409
  Transmission Date: 20120825
  Serious: Yes (Other)
  Sender: FDA-Public Use
  Company Number: US-JNJFOC-20120308435

PATIENT
  Age: 26 Year
  Sex: Female
  Weight: 62.6 kg

DRUGS (7)
  1. NITROFURANTOIN [Suspect]
     Indication: PRODUCT USED FOR UNKNOWN INDICATION
     Route: 065
     Dates: start: 20051129
  2. TOPAMAX [Suspect]
     Dosage: EVERY PM FOR A WEEK
     Route: 048
  3. TOPAMAX [Suspect]
     Indication: HEADACHE
     Dosage: EVERY PM
     Route: 048
  4. TOPAMAX [Suspect]
     Dosage: 1 EACH EVENING FOR 1 WEEK
     Route: 048
     Dates: start: 20051021
  5. TOPAMAX [Suspect]
     Dosage: EVERY PM FOR A WEEK
     Route: 048
  6. MIGQUIN [Suspect]
     Indication: PRODUCT USED FOR UNKNOWN INDICATION
     Route: 065
     Dates: start: 20051024
  7. MIDRIN [Suspect]
     Indication: HEADACHE
     Route: 065
     Dates: start: 20051021

REACTIONS (3)
  - NAUSEA [None]
  - PREMATURE LABOUR [None]
  - MATERNAL EXPOSURE DURING PREGNANCY [None]
